FAERS Safety Report 25983807 (Version 2)
Quarter: 2025Q4

REPORT INFORMATION
  Report Type: Spontaneous
  Country: SA (occurrence: SA)
  Receive Date: 20251031
  Receipt Date: 20251105
  Transmission Date: 20260118
  Serious: Yes (Other)
  Sender: MERCK SHARP & DOHME LLC
  Company Number: SA-009507513-2344009

PATIENT
  Age: 54 Year
  Sex: Male

DRUGS (3)
  1. METFORMIN HYDROCHLORIDE\SITAGLIPTIN PHOSPHATE [Suspect]
     Active Substance: METFORMIN HYDROCHLORIDE\SITAGLIPTIN PHOSPHATE
     Indication: Type 2 diabetes mellitus
     Dosage: COMBINATION THERAPY OF SITAGLIPTIN (50 MG) AND METFORMIN (500 MG) TWICE DAILY
     Dates: start: 2022
  2. aspirin (Ecosprin, 75 mg) [Concomitant]
     Indication: Hypertension
  3. telmisartan (40 mg) [Concomitant]
     Indication: Hypertension

REACTIONS (1)
  - Hyperthyroidism [Recovered/Resolved]

NARRATIVE: CASE EVENT DATE: 20220101
